FAERS Safety Report 12805038 (Version 1)
Quarter: 2016Q4

REPORT INFORMATION
  Report Type: Spontaneous
  Country: US (occurrence: US)
  Receive Date: 20161004
  Receipt Date: 20161004
  Transmission Date: 20170207
  Serious: Yes (Other)
  Sender: FDA-Public Use
  Company Number: US-AMGEN-USASP2016134832

PATIENT
  Age: 78 Year
  Sex: Female

DRUGS (1)
  1. ENBREL [Suspect]
     Active Substance: ETANERCEPT
     Indication: PUSTULAR PSORIASIS
     Dosage: UNK UNK, QWK
     Route: 065

REACTIONS (5)
  - Off label use [Unknown]
  - Intentional product misuse [Unknown]
  - Corrective lens user [Unknown]
  - Musculoskeletal disorder [Unknown]
  - Abasia [Not Recovered/Not Resolved]
